FAERS Safety Report 19227665 (Version 1)
Quarter: 2021Q2

REPORT INFORMATION
  Report Type: Spontaneous
  Country: DE (occurrence: DE)
  Receive Date: 20210507
  Receipt Date: 20210507
  Transmission Date: 20210717
  Serious: Yes (Other)
  Sender: FDA-Public Use
  Company Number: DE-SUN PHARMACEUTICAL INDUSTRIES LTD-2021RR-294958

PATIENT
  Age: 31 Year
  Sex: Male
  Weight: 83 kg

DRUGS (2)
  1. TRAMADOL. [Interacting]
     Active Substance: TRAMADOL
     Indication: RIB FRACTURE
     Dosage: 4 DOSAGE FORM, DAILY, AT THE BEGINNING OF APRIL, 4 STROKES FROM THE PUMP BOTTLE EVERY EVENING FOR AB
     Route: 048
     Dates: start: 20200401, end: 20200414
  2. IMATINIB. [Suspect]
     Active Substance: IMATINIB MESYLATE
     Indication: CHRONIC MYELOID LEUKAEMIA
     Dosage: 400 MILLIGRAM, DAILY, 400 MG DAILY IN THE EVENING
     Route: 048

REACTIONS (2)
  - Philadelphia chromosome positive [Recovering/Resolving]
  - Drug interaction [Unknown]

NARRATIVE: CASE EVENT DATE: 20200519
